FAERS Safety Report 4294461-9 (Version None)
Quarter: 2004Q1

REPORT INFORMATION
  Report Type: 
  Country: None (occurrence: None)
  Receive Date: 20040211
  Receipt Date: 20040202
  Transmission Date: 20041129
  Serious: Yes (Death, Other)
  Sender: FDA-Public Use
  Company Number: 2004007016

PATIENT
  Age: 62 Year
  Sex: Male

DRUGS (2)
  1. SORTIS (ATORVASTATIN) [Suspect]
     Indication: CORONARY ARTERY DISEASE
     Dosage: 40 MG (DAILY), ORAL
     Route: 048
     Dates: start: 20021126, end: 20040110
  2. CLOPIDOGREL BISULFATE [Suspect]
     Indication: ILL-DEFINED DISORDER
     Dosage: 75 MG (DAILY)
     Dates: start: 20021126, end: 20040110

REACTIONS (5)
  - CARDIOGENIC SHOCK [None]
  - MEDICAL DEVICE COMPLICATION [None]
  - PULMONARY OEDEMA [None]
  - STENT OCCLUSION [None]
  - THROMBOSIS [None]
